FAERS Safety Report 21161991 (Version 6)
Quarter: 2022Q4

REPORT INFORMATION
  Report Type: Report from Study
  Country: US (occurrence: US)
  Receive Date: 20220802
  Receipt Date: 20221013
  Transmission Date: 20230113
  Serious: Yes (Hospitalization, Other)
  Sender: FDA-Public Use
  Company Number: NVSC2022US173693

PATIENT
  Age: 16 Year
  Sex: Female
  Weight: 93.1 kg

DRUGS (2)
  1. GILENYA [Suspect]
     Active Substance: FINGOLIMOD HYDROCHLORIDE
     Indication: Multiple sclerosis
     Dosage: 0.5 MG, QD
     Route: 048
     Dates: start: 20220727
  2. GILENYA [Suspect]
     Active Substance: FINGOLIMOD HYDROCHLORIDE
     Dosage: 0.5 MG, QD
     Route: 048
     Dates: start: 20220728

REACTIONS (1)
  - Sinus bradycardia [Recovered/Resolved]

NARRATIVE: CASE EVENT DATE: 20220727
